FAERS Safety Report 7176896-X (Version None)
Quarter: 2010Q4

REPORT INFORMATION
  Report Type: 
  Country: None (occurrence: None)
  Receive Date: 20101129
  Receipt Date: 20101129
  Transmission Date: 20110411
  Serious: Yes (Life-Threatening)
  Sender: FDA-Public Use
  Company Number: None

PATIENT
  Age: 59 Year
  Sex: Female
  Weight: 49.8957 kg

DRUGS (1)
  1. LEXI-SCAN 0.08 MG/ML ASTELLAS [Suspect]

REACTIONS (1)
  - RESPIRATORY ARREST [None]
